FAERS Safety Report 7538647-6 (Version None)
Quarter: 2011Q2

REPORT INFORMATION
  Report Type: 
  Country: None (occurrence: None)
  Receive Date: 20110610
  Receipt Date: 20110531
  Transmission Date: 20111010
  Serious: No
  Sender: FDA-Public Use
  Company Number: US-BIOGENIDEC-2011BI020210

PATIENT
  Age: 32 Year
  Sex: Female

DRUGS (2)
  1. XANAX [Concomitant]
     Indication: AGGRESSION
  2. AVONEX [Suspect]
     Indication: MULTIPLE SCLEROSIS
     Route: 030
     Dates: start: 20071203

REACTIONS (6)
  - TREMOR [None]
  - TOOTH FRACTURE [None]
  - CENTRAL NERVOUS SYSTEM LESION [None]
  - BLINDNESS [None]
  - AGGRESSION [None]
  - ABASIA [None]
